FAERS Safety Report 12496806 (Version 1)
Quarter: 2016Q2

REPORT INFORMATION
  Report Type: Spontaneous
  Country: GB (occurrence: GB)
  Receive Date: 20160624
  Receipt Date: 20160624
  Transmission Date: 20160815
  Serious: Yes (Hospitalization, Other)
  Sender: FDA-Public Use
  Company Number: GB-BAXTER-2016BAX032028

PATIENT
  Sex: Male

DRUGS (4)
  1. ONE-ALFACALCIDOL [Suspect]
     Active Substance: ALFACALCIDOL
     Indication: BLOOD CALCIUM DECREASED
     Route: 065
  2. DIANEAL [Suspect]
     Active Substance: CALCIUM CHLORIDE\DEXTROSE\MAGNESIUM CHLORIDE\SODIUM CHLORIDE\SODIUM LACTATE
     Indication: PERITONEAL DIALYSIS
     Route: 033
  3. ONE-ALFACALCIDOL [Suspect]
     Active Substance: ALFACALCIDOL
     Route: 065
  4. EXTRANEAL [Suspect]
     Active Substance: CALCIUM CHLORIDE\ICODEXTRIN\MAGNESIUM CHLORIDE\SODIUM CHLORIDE\SODIUM LACTATE
     Indication: PERITONEAL DIALYSIS
     Route: 033

REACTIONS (6)
  - Myalgia [Unknown]
  - Splenomegaly [Unknown]
  - Blood calcium decreased [Unknown]
  - Internal haemorrhage [Unknown]
  - Bone pain [Not Recovered/Not Resolved]
  - Overdose [Unknown]
